FAERS Safety Report 5242872-7 (Version None)
Quarter: 2007Q1

REPORT INFORMATION
  Report Type: 
  Country: None (occurrence: None)
  Receive Date: 20070221
  Receipt Date: 20070209
  Transmission Date: 20070707
  Serious: Yes (Other)
  Sender: FDA-Public Use
  Company Number: JP-ELI_LILLY_AND_COMPANY-JP200702002539

PATIENT
  Age: 75 Year
  Sex: Female
  Weight: 58.2 kg

DRUGS (4)
  1. RALOXIFENE HCL [Suspect]
     Indication: OSTEOPOROSIS POSTMENOPAUSAL
     Dosage: 60 MG, DAILY (1/D)
     Route: 048
     Dates: start: 20050530, end: 20060329
  2. RALOXIFENE HCL [Suspect]
     Dosage: 60 MG, DAILY (1/D)
     Route: 048
     Dates: start: 20060426
  3. GASTER D [Concomitant]
     Indication: GASTRIC ULCER
     Dosage: 40 MG, DAILY (1/D)
     Route: 048
  4. THYRADIN S [Concomitant]
     Indication: AUTOIMMUNE THYROIDITIS
     Dosage: 25 UG, DAILY (1/D)
     Route: 048
     Dates: start: 20061225

REACTIONS (1)
  - AORTIC THROMBOSIS [None]
